FAERS Safety Report 5127395-8 (Version None)
Quarter: 2006Q4

REPORT INFORMATION
  Report Type: 
  Country: None (occurrence: None)
  Receive Date: 20061013
  Receipt Date: 20061013
  Transmission Date: 20070319
  Serious: Yes (Hospitalization)
  Sender: FDA-Public Use
  Company Number: None

PATIENT
  Age: 56 Year
  Sex: Male
  Weight: 80 kg

DRUGS (10)
  1. BEVACIZUMAB 10 MG/M2 WEEKS 1,3,5,7 [Suspect]
     Indication: NEOPLASM MALIGNANT
     Dosage: 812 MG WEEKS 1,3
     Dates: start: 20060912
  2. BEVACIZUMAB 10 MG/M2 WEEKS 1,3,5,7 [Suspect]
     Indication: NEOPLASM MALIGNANT
     Dosage: 812 MG WEEKS 1,3
     Dates: start: 20060926
  3. CISPLATIN  33 MG/M2   WEEKS 1,3 [Suspect]
     Indication: NEOPLASM MALIGNANT
     Dosage: 65 MG  WKS X 3 DAYS
     Dates: start: 20060912, end: 20060914
  4. ERLOTINIB [Concomitant]
  5. ZOFRAN [Concomitant]
  6. DULCOLAX [Concomitant]
  7. DECADRON [Concomitant]
  8. PRILOSEC [Concomitant]
  9. COMPAZINE [Concomitant]
  10. SENNA-S [Concomitant]

REACTIONS (3)
  - FEEDING TUBE COMPLICATION [None]
  - NAUSEA [None]
  - VOMITING [None]
